FAERS Safety Report 13570201 (Version 1)
Quarter: 2017Q2

REPORT INFORMATION
  Report Type: Spontaneous
  Country: US (occurrence: US)
  Receive Date: 20170522
  Receipt Date: 20170522
  Transmission Date: 20170830
  Serious: No
  Sender: FDA-Public Use
  Company Number: US-MAYNE PHARMA-2016MYN000608

PATIENT
  Age: 75 Year
  Sex: Female

DRUGS (1)
  1. NORTRIPTYLINE HYDROCHLORIDE. [Suspect]
     Active Substance: NORTRIPTYLINE HYDROCHLORIDE
     Indication: NEUROPATHY PERIPHERAL
     Dosage: 10 MG, QD
     Route: 048
     Dates: start: 20160814

REACTIONS (2)
  - Drug ineffective [Not Recovered/Not Resolved]
  - Off label use [None]

NARRATIVE: CASE EVENT DATE: 20160912
